FAERS Safety Report 10653978 (Version 1)
Quarter: 2014Q4

REPORT INFORMATION
  Report Type: Spontaneous
  Country: US (occurrence: None)
  Receive Date: 20141215
  Receipt Date: 20141215
  Transmission Date: 20150529
  Serious: Yes (Hospitalization)
  Sender: FDA-Public Use
  Company Number: None

PATIENT
  Sex: Female

DRUGS (1)
  1. CVS NIGHTTIME COLD/FLU RELIEF [Suspect]
     Active Substance: ACETAMINOPHEN\DEXTROMETHORPHAN HYDROBROMIDE\DOXYLAMINE SUCCINATE
     Dosage: USED 1 1/2 TSPS.
     Dates: start: 20141128, end: 20141128

REACTIONS (5)
  - Drug ineffective [None]
  - Syncope [None]
  - Insomnia [None]
  - Dysarthria [None]
  - Mental disorder [None]

NARRATIVE: CASE EVENT DATE: 20141129
